FAERS Safety Report 7823184-1 (Version None)
Quarter: 2011Q4

REPORT INFORMATION
  Report Type: 
  Country: None (occurrence: None)
  Receive Date: 20111019
  Receipt Date: 20111012
  Transmission Date: 20120403
  Serious: No
  Sender: FDA-Public Use
  Company Number: US-BIOGENIDEC-2011BI038904

PATIENT
  Sex: Female

DRUGS (1)
  1. TYSABRI [Suspect]
     Indication: MULTIPLE SCLEROSIS
     Route: 042
     Dates: start: 20061101

REACTIONS (6)
  - OROPHARYNGEAL PAIN [None]
  - VIRAL INFECTION [None]
  - STOMATITIS [None]
  - TEMPOROMANDIBULAR JOINT SYNDROME [None]
  - PYREXIA [None]
  - SINUSITIS [None]
